FAERS Safety Report 9438299 (Version 1)
Quarter: 2013Q3

REPORT INFORMATION
  Report Type: Spontaneous
  Country: US (occurrence: US)
  Receive Date: 20130802
  Receipt Date: 20130802
  Transmission Date: 20140515
  Serious: No
  Sender: FDA-Public Use
  Company Number: US-BRISTOL-MYERS SQUIBB COMPANY-17133158

PATIENT
  Age: 58 Year
  Sex: Male
  Weight: 94.33 kg

DRUGS (2)
  1. COUMADIN [Suspect]
     Indication: CEREBROVASCULAR ACCIDENT
  2. ASPIRIN [Concomitant]

REACTIONS (1)
  - Dermatitis contact [Unknown]
